FAERS Safety Report 13377678 (Version 1)
Quarter: 2017Q1

REPORT INFORMATION
  Report Type: Spontaneous
  Country: US (occurrence: US)
  Receive Date: 20170328
  Receipt Date: 20170328
  Transmission Date: 20170429
  Serious: Yes (Death, Hospitalization)
  Sender: FDA-Public Use
  Company Number: None

PATIENT
  Age: 59 Year
  Sex: Female

DRUGS (22)
  1. APRESOLINE HYDROCHLORIDE [Concomitant]
     Active Substance: HYDRALAZINE HYDROCHLORIDE
  2. MYCOBU- TIN [Concomitant]
  3. THIAMINE. [Concomitant]
     Active Substance: THIAMINE
  4. LIDODERM [Concomitant]
     Active Substance: LIDOCAINE
  5. BIAXIN [Concomitant]
     Active Substance: CLARITHROMYCIN
  6. MYCELEX [Concomitant]
     Active Substance: CLOTRIMAZOLE
  7. LASIX [Concomitant]
     Active Substance: FUROSEMIDE
  8. NORVASC [Concomitant]
     Active Substance: AMLODIPINE BESYLATE
  9. COREG [Concomitant]
     Active Substance: CARVEDILOL
  10. OSCAL [Concomitant]
     Active Substance: CALCIUM CARBONATE
  11. COLACE [Concomitant]
     Active Substance: DOCUSATE SODIUM
  12. MYAMBUTOL [Concomitant]
     Active Substance: ETHAMBUTOL HYDROCHLORIDE
  13. MAG-OX [Concomitant]
     Active Substance: MAGNESIUM OXIDE
  14. SODIUM BICARBONATE. [Concomitant]
     Active Substance: SODIUM BICARBONATE
  15. EFFEXOR [Concomitant]
     Active Substance: VENLAFAXINE HYDROCHLORIDE
  16. LIPITOR [Concomitant]
     Active Substance: ATORVASTATIN CALCIUM
  17. CLOFAZIMINE [Suspect]
     Active Substance: CLOFAZIMINE
     Indication: MYCOBACTERIUM AVIUM COMPLEX INFECTION
  18. REMERON [Concomitant]
     Active Substance: MIRTAZAPINE
  19. FOLVITE [Concomitant]
     Active Substance: FOLIC ACID
  20. K-DUR [Concomitant]
     Active Substance: POTASSIUM CHLORIDE
  21. CARAFATE [Concomitant]
     Active Substance: SUCRALFATE
  22. ZOFRAN [Concomitant]
     Active Substance: ONDANSETRON HYDROCHLORIDE

REACTIONS (1)
  - Ventricular fibrillation [None]

NARRATIVE: CASE EVENT DATE: 20170305
